FAERS Safety Report 4979616-X (Version None)
Quarter: 2006Q2

REPORT INFORMATION
  Report Type: 
  Country: None (occurrence: None)
  Receive Date: 20060418
  Receipt Date: 20060331
  Transmission Date: 20061013
  Serious: Yes (Hospitalization)
  Sender: FDA-Public Use
  Company Number: DE200604000341

PATIENT
  Age: 42 Year
  Sex: Male

DRUGS (3)
  1. ZYPREXA [Suspect]
     Indication: SCHIZOPHRENIA, PARANOID TYPE
     Dosage: 20 MG, DAILY (1/D), ORAL
     Route: 048
     Dates: start: 20060322, end: 20060327
  2. LORAZEPAM [Concomitant]
  3. PROTHIPENDYL (PROTHIPENDYL) [Concomitant]

REACTIONS (2)
  - FACE OEDEMA [None]
  - RASH [None]
